FAERS Safety Report 15855181 (Version 1)
Quarter: 2019Q1

REPORT INFORMATION
  Report Type: Spontaneous
  Country: NL (occurrence: NL)
  Receive Date: 20190122
  Receipt Date: 20190122
  Transmission Date: 20190417
  Serious: Yes (Other)
  Sender: FDA-Public Use
  Company Number: NL-TEVA-2019-NL-1001740

PATIENT

DRUGS (4)
  1. FOLIUMZUUR [Concomitant]
     Active Substance: FOLIC ACID
  2. ARCTIC BLUE; OMEGA 3 [Concomitant]
  3. AMOXICILLINE/CLAVULAANZUUR TABLET, 500/125 MG (MILLIGRAM)AMOXICILLINE/ [Suspect]
     Active Substance: AMOXICILLIN\CLAVULANATE POTASSIUM
     Indication: CYSTITIS
     Dosage: 3X DAY 1 PIECE
     Dates: start: 20181211
  4. DAVITAMON [Concomitant]

REACTIONS (2)
  - Maternal exposure during pregnancy [Unknown]
  - Foetal hypokinesia [Recovered/Resolved]

NARRATIVE: CASE EVENT DATE: 20181212
